FAERS Safety Report 13847725 (Version 1)
Quarter: 2017Q3

REPORT INFORMATION
  Report Type: Spontaneous
  Country: US (occurrence: US)
  Receive Date: 20170808
  Receipt Date: 20170808
  Transmission Date: 20171127
  Serious: Yes (Death)
  Sender: FDA-Public Use
  Company Number: None

PATIENT
  Age: 91 Year
  Sex: Female

DRUGS (13)
  1. VITAMIN B12 [Concomitant]
     Active Substance: CYANOCOBALAMIN
  2. GLUCOSAMINE [Concomitant]
     Active Substance: GLUCOSAMINE
  3. VITAMIN D [Concomitant]
     Active Substance: CHOLECALCIFEROL
  4. CALCIUM+D [Concomitant]
     Active Substance: CALCIUM\VITAMIN D
  5. GABAPENTIN. [Concomitant]
     Active Substance: GABAPENTIN
  6. MG [Concomitant]
     Active Substance: MAGNESIUM
  7. CRANBERRY. [Concomitant]
     Active Substance: CRANBERRY
  8. FISH OIL [Concomitant]
     Active Substance: FISH OIL
  9. JADENU [Suspect]
     Active Substance: DEFERASIROX
     Indication: IRON OVERLOAD
     Route: 048
     Dates: start: 201510, end: 201707
  10. ARANESP [Concomitant]
     Active Substance: DARBEPOETIN ALFA
  11. TRAMADOL. [Concomitant]
     Active Substance: TRAMADOL
  12. CLONAZEPAM. [Concomitant]
     Active Substance: CLONAZEPAM
  13. VITAMIN E [Concomitant]
     Active Substance: .ALPHA.-TOCOPHEROL

REACTIONS (1)
  - Death [None]

NARRATIVE: CASE EVENT DATE: 20170729
